FAERS Safety Report 16295554 (Version 1)
Quarter: 2019Q2

REPORT INFORMATION
  Report Type: Spontaneous
  Country: US (occurrence: US)
  Receive Date: 20190509
  Receipt Date: 20190509
  Transmission Date: 20190711
  Serious: No
  Sender: FDA-Public Use
  Company Number: None

PATIENT
  Sex: Female
  Weight: 74.39 kg

DRUGS (1)
  1. MIRENA [Suspect]
     Active Substance: LEVONORGESTREL
     Dates: start: 20190506, end: 20190509

REACTIONS (5)
  - Abdominal pain [None]
  - Dizziness [None]
  - Back pain [None]
  - Nausea [None]
  - Complication associated with device [None]
